FAERS Safety Report 7226069-7 (Version None)
Quarter: 2011Q1

REPORT INFORMATION
  Report Type: 
  Country: None (occurrence: None)
  Receive Date: 20110113
  Receipt Date: 20110111
  Transmission Date: 20110831
  Serious: Yes (Hospitalization, Other)
  Sender: FDA-Public Use
  Company Number: US-MERCK-1012USA01871

PATIENT
  Age: 80 Year
  Sex: Female

DRUGS (6)
  1. LEVOXYL [Concomitant]
     Route: 065
  2. LISINOPRIL [Concomitant]
     Route: 065
  3. SPIRIVA [Concomitant]
     Route: 065
  4. FOSAMAX [Suspect]
     Indication: OSTEOPOROSIS
     Route: 048
     Dates: start: 20061101, end: 20101201
  5. OMEPRAZOLE [Concomitant]
     Route: 065
  6. VENTOLIN [Concomitant]
     Route: 065

REACTIONS (2)
  - PAIN IN EXTREMITY [None]
  - FEMUR FRACTURE [None]
